FAERS Safety Report 8943946 (Version 2)
Quarter: 2012Q4

REPORT INFORMATION
  Report Type: 
  Country: NL (occurrence: NL)
  Receive Date: 20121204
  Receipt Date: 20121210
  Transmission Date: 20130627
  Serious: Yes (Life-Threatening, Other)
  Sender: FDA-Public Use
  Company Number: NL-ASTRAZENECA-2012SE89673

PATIENT
  Age: 10749 Day
  Sex: Male
  Weight: 89 kg

DRUGS (2)
  1. SEROQUEL XR [Suspect]
     Indication: PERSONALITY DISORDER
     Route: 048
     Dates: start: 201207, end: 20121129
  2. VENLAFAXINE [Concomitant]
     Route: 048
     Dates: start: 20120814, end: 20121129

REACTIONS (1)
  - Venous thrombosis limb [Unknown]
